FAERS Safety Report 17888996 (Version 1)
Quarter: 2020Q2

REPORT INFORMATION
  Report Type: Spontaneous
  Country: US (occurrence: US)
  Receive Date: 20200612
  Receipt Date: 20200612
  Transmission Date: 20200714
  Serious: No
  Sender: FDA-Public Use
  Company Number: US-SA-2020SA151788

PATIENT

DRUGS (15)
  1. MULTIVITAMIN [ASCORBIC ACID;CALCIUM CARBONATE;CYANOCOBALAMIN;NICOTINAM [Concomitant]
  2. TIZANIDINE HCL [Concomitant]
     Active Substance: TIZANIDINE HYDROCHLORIDE
  3. BACLOFEN. [Concomitant]
     Active Substance: BACLOFEN
  4. VIT D [Concomitant]
     Active Substance: VITAMIN D NOS
  5. FISH OIL [Concomitant]
     Active Substance: FISH OIL
  6. IRON [Concomitant]
     Active Substance: IRON
  7. IBUPROFEN. [Concomitant]
     Active Substance: IBUPROFEN
  8. VITAMIN B COMPLEX [Concomitant]
     Active Substance: CYANOCOBALAMIN\DEXPANTHENOL\NIACINAMIDE\PYRIDOXINE HYDROCHLORIDE\RIBOFLAVIN 5^-PHOSPHATE SODIUM\THIAMINE HYDROCHLORIDE\VITAMIN B COMPLEX
  9. VALSARTAN. [Concomitant]
     Active Substance: VALSARTAN
  10. VITAMIN C [Concomitant]
     Active Substance: ASCORBIC ACID
  11. AUBAGIO [Suspect]
     Active Substance: TERIFLUNOMIDE
     Indication: PRODUCT USED FOR UNKNOWN INDICATION
     Dosage: 7 MG, QD
     Route: 048
     Dates: start: 20200210
  12. ARICEPT [Concomitant]
     Active Substance: DONEPEZIL HYDROCHLORIDE
  13. AMLODIPINE BESYLATE. [Concomitant]
     Active Substance: AMLODIPINE BESYLATE
  14. FLUOXETINE HCL [Concomitant]
     Active Substance: FLUOXETINE HYDROCHLORIDE
  15. OMEPRAZOLE. [Concomitant]
     Active Substance: OMEPRAZOLE

REACTIONS (6)
  - Memory impairment [Not Recovered/Not Resolved]
  - Gait disturbance [Not Recovered/Not Resolved]
  - Fatigue [Not Recovered/Not Resolved]
  - Tremor [Not Recovered/Not Resolved]
  - Urinary incontinence [Not Recovered/Not Resolved]
  - Anal incontinence [Not Recovered/Not Resolved]
